FAERS Safety Report 6385626-0 (Version None)
Quarter: 2009Q4

REPORT INFORMATION
  Report Type: 
  Country: None (occurrence: None)
  Receive Date: 20091002
  Receipt Date: 20081014
  Transmission Date: 20100525
  Serious: Yes (Other)
  Sender: FDA-Public Use
  Company Number: US-ASTRAZENECA-2008UW22606

PATIENT
  Age: 63 Year
  Sex: Female
  Weight: 59.9 kg

DRUGS (6)
  1. ARIMIDEX [Suspect]
     Indication: BREAST CANCER
     Route: 048
  2. COUMADIN [Concomitant]
  3. LOMOTIL [Concomitant]
  4. FOSOMAX WITH D [Concomitant]
  5. VITAMIN B-12 [Concomitant]
  6. POTASSIUM CHLORIDE [Concomitant]

REACTIONS (2)
  - BENIGN BREAST NEOPLASM [None]
  - CARPAL TUNNEL SYNDROME [None]
